FAERS Safety Report 9753762 (Version 3)
Quarter: 2015Q3

REPORT INFORMATION
  Report Type: Spontaneous
  Country: US (occurrence: US)
  Receive Date: 20131213
  Receipt Date: 20150805
  Transmission Date: 20151125
  Serious: No
  Sender: FDA-Public Use
  Company Number: US-GILEAD-2010-0026520

PATIENT
  Age: 68 Year
  Sex: Male
  Weight: 144.24 kg

DRUGS (23)
  1. LETAIRIS [Suspect]
     Active Substance: AMBRISENTAN
     Indication: PULMONARY ARTERIAL HYPERTENSION
     Route: 048
     Dates: start: 20091221
  2. MIRAPEX [Concomitant]
     Active Substance: PRAMIPEXOLE DIHYDROCHLORIDE
  3. MUCINEX [Concomitant]
     Active Substance: GUAIFENESIN
  4. ZYRTEC [Concomitant]
     Active Substance: CETIRIZINE HYDROCHLORIDE
  5. GLYBURIDE. [Concomitant]
     Active Substance: GLYBURIDE
  6. METROGEL TOPICAL 1% GEL [Concomitant]
  7. REVATIO [Concomitant]
     Active Substance: SILDENAFIL CITRATE
  8. ASMANEX [Concomitant]
     Active Substance: MOMETASONE FUROATE
  9. DETROL LA [Concomitant]
     Active Substance: TOLTERODINE TARTRATE
  10. FLUTICASONE [Concomitant]
     Active Substance: FLUTICASONE\FLUTICASONE PROPIONATE
  11. SINGULAIR [Concomitant]
     Active Substance: MONTELUKAST SODIUM
  12. ALLOPURINOL. [Concomitant]
     Active Substance: ALLOPURINOL
  13. VOLTAREN 1% GEL [Concomitant]
  14. LETAIRIS [Suspect]
     Active Substance: AMBRISENTAN
     Route: 048
     Dates: start: 20080630, end: 20091220
  15. LASIX [Concomitant]
     Active Substance: FUROSEMIDE
  16. CARDIZEM [Concomitant]
     Active Substance: DILTIAZEM HYDROCHLORIDE
  17. TYLENOL 8 HR [Concomitant]
     Active Substance: ACETAMINOPHEN
  18. ALBUTEROL. [Concomitant]
     Active Substance: ALBUTEROL
  19. CALCIUM CITRATE/ERGOCALCIFEROL [Concomitant]
  20. OXYGEN. [Concomitant]
     Active Substance: OXYGEN
  21. TOPROL XL [Concomitant]
     Active Substance: METOPROLOL SUCCINATE
  22. COLACE [Concomitant]
     Active Substance: DOCUSATE SODIUM
  23. ASTELIN [Concomitant]
     Active Substance: AZELASTINE HYDROCHLORIDE

REACTIONS (1)
  - Fluid retention [Unknown]
